FAERS Safety Report 10570476 (Version 1)
Quarter: 2014Q4

REPORT INFORMATION
  Report Type: Spontaneous
  Country: US (occurrence: US)
  Receive Date: 20141107
  Receipt Date: 20141107
  Transmission Date: 20150529
  Serious: Yes (Hospitalization, Other)
  Sender: FDA-Public Use
  Company Number: US-ASTELLAS-2014US016909

PATIENT
  Sex: Male

DRUGS (1)
  1. TARCEVA [Suspect]
     Active Substance: ERLOTINIB HYDROCHLORIDE
     Indication: LUNG NEOPLASM MALIGNANT
     Dosage: UNK, UNKNOWN FREQ.
     Route: 065
     Dates: start: 20141021

REACTIONS (8)
  - Haematemesis [Unknown]
  - Haemoglobin decreased [Unknown]
  - Melaena [Unknown]
  - Pallor [Unknown]
  - Ulcer haemorrhage [Recovered/Resolved]
  - Duodenal ulcer [Unknown]
  - Faeces discoloured [Unknown]
  - Seizure [Unknown]

NARRATIVE: CASE EVENT DATE: 20141022
